FAERS Safety Report 6465231-8 (Version None)
Quarter: 2009Q4

REPORT INFORMATION
  Report Type: 
  Country: None (occurrence: None)
  Receive Date: 20091201
  Receipt Date: 20090507
  Transmission Date: 20100525
  Serious: No
  Sender: FDA-Public Use
  Company Number: US-AMGEN-COG346212

PATIENT
  Sex: Female

DRUGS (3)
  1. ENBREL [Suspect]
     Indication: RHEUMATOID ARTHRITIS
     Route: 058
     Dates: start: 20080305
  2. ENBREL [Suspect]
     Indication: OSTEOARTHRITIS
  3. METHOTREXATE [Concomitant]
     Route: 048

REACTIONS (3)
  - ARTHRALGIA [None]
  - ARTHROPATHY [None]
  - SKIN DISCOLOURATION [None]
